FAERS Safety Report 24370771 (Version 1)
Quarter: 2024Q3

REPORT INFORMATION
  Report Type: Spontaneous
  Country: US (occurrence: US)
  Receive Date: 20240927
  Receipt Date: 20240927
  Transmission Date: 20241017
  Serious: No
  Sender: RECKITT BENCKISER
  Company Number: US-Indivior Limited-INDV-140719-2023

PATIENT
  Age: 42 Year
  Sex: Female
  Weight: 22.676 kg

DRUGS (2)
  1. PERSERIS [Suspect]
     Active Substance: RISPERIDONE
     Indication: Schizoaffective disorder bipolar type
     Dosage: 90 MILLIGRAM, QMO
     Route: 065
     Dates: start: 202301
  2. PERSERIS [Suspect]
     Active Substance: RISPERIDONE

REACTIONS (2)
  - Off label use [Recovered/Resolved]
  - Weight increased [Recovered/Resolved]

NARRATIVE: CASE EVENT DATE: 20230101
